FAERS Safety Report 16875212 (Version 3)
Quarter: 2020Q2

REPORT INFORMATION
  Report Type: Report from Study
  Country: US (occurrence: US)
  Receive Date: 20191001
  Receipt Date: 20200529
  Transmission Date: 20200713
  Serious: Yes (Other)
  Sender: FDA-Public Use
  Company Number: US-ALEXION PHARMACEUTICALS INC.-A201914152

PATIENT
  Sex: Male

DRUGS (2)
  1. SOLIRIS [Suspect]
     Active Substance: ECULIZUMAB
     Indication: MYASTHENIA GRAVIS
     Dosage: UNK
     Route: 065
  2. PREDNISONE. [Suspect]
     Active Substance: PREDNISONE
     Indication: PRODUCT USED FOR UNKNOWN INDICATION
     Dosage: 35 MG, UNK
     Route: 065

REACTIONS (12)
  - Weight increased [Unknown]
  - Asthenia [Recovering/Resolving]
  - Spinal disorder [Unknown]
  - Somnolence [Unknown]
  - Disorientation [Unknown]
  - Muscular weakness [Unknown]
  - Blood iron decreased [Unknown]
  - Feeling abnormal [Unknown]
  - Swelling face [Unknown]
  - Drug ineffective [Recovered/Resolved]
  - Arthritis [Unknown]
  - Intervertebral disc protrusion [Unknown]

NARRATIVE: CASE EVENT DATE: 202005
